FAERS Safety Report 6203573-1 (Version None)
Quarter: 2009Q2

REPORT INFORMATION
  Report Type: 
  Country: None (occurrence: None)
  Receive Date: 20090527
  Receipt Date: 20090518
  Transmission Date: 20091009
  Serious: Yes (Hospitalization, Other)
  Sender: FDA-Public Use
  Company Number: US-BRISTOL-MYERS SQUIBB COMPANY-14636385

PATIENT
  Age: 38 Year
  Sex: Male

DRUGS (6)
  1. DIDANOSINE [Interacting]
     Indication: HIV INFECTION
  2. TENOFOVIR [Interacting]
     Indication: HIV INFECTION
  3. RITONAVIR [Suspect]
     Indication: HIV INFECTION
  4. FOSAMPRENAVIR CALCIUM [Suspect]
     Indication: HIV INFECTION
  5. PANTOPRAZOLE SODIUM [Concomitant]
  6. EZETIMIBE [Concomitant]

REACTIONS (3)
  - DRUG INTERACTION [None]
  - FANCONI SYNDROME [None]
  - NEPHROGENIC DIABETES INSIPIDUS [None]
